FAERS Safety Report 17061617 (Version 21)
Quarter: 2024Q1

REPORT INFORMATION
  Report Type: Report from Study
  Country: JP (occurrence: JP)
  Receive Date: 20191121
  Receipt Date: 20240228
  Transmission Date: 20240410
  Serious: Yes (Death, Hospitalization, Other)
  Sender: FDA-Public Use
  Company Number: JP-ALNYLAM PHARMACEUTICALS, INC.-ALN-2019-000878

PATIENT

DRUGS (67)
  1. ONPATTRO [Suspect]
     Active Substance: PATISIRAN SODIUM
     Indication: Hereditary neuropathic amyloidosis
     Dosage: 11.1 MILLIGRAM
     Route: 041
     Dates: start: 20191106, end: 20200129
  2. ONPATTRO [Suspect]
     Active Substance: PATISIRAN SODIUM
     Dosage: 11.4 MILLIGRAM
     Route: 041
     Dates: start: 20200219, end: 20200219
  3. ONPATTRO [Suspect]
     Active Substance: PATISIRAN SODIUM
     Dosage: 10.5 MILLIGRAM
     Route: 041
     Dates: start: 20200311, end: 20200513
  4. ONPATTRO [Suspect]
     Active Substance: PATISIRAN SODIUM
     Dosage: 11.1 MILLIGRAM
     Route: 041
     Dates: start: 20200603, end: 20200624
  5. ONPATTRO [Suspect]
     Active Substance: PATISIRAN SODIUM
     Dosage: 11.4 MILLIGRAM
     Route: 041
     Dates: start: 20200715, end: 20200805
  6. ONPATTRO [Suspect]
     Active Substance: PATISIRAN SODIUM
     Dosage: 11.7 MILLIGRAM
     Route: 041
     Dates: start: 20200826, end: 20201118
  7. ONPATTRO [Suspect]
     Active Substance: PATISIRAN SODIUM
     Dosage: 12 MILLIGRAM
     Route: 041
     Dates: start: 20201209, end: 20210106
  8. ONPATTRO [Suspect]
     Active Substance: PATISIRAN SODIUM
     Dosage: 11.7 MILLIGRAM
     Route: 041
     Dates: start: 20210127, end: 20210217
  9. ONPATTRO [Suspect]
     Active Substance: PATISIRAN SODIUM
     Dosage: 12 MILLIGRAM
     Route: 041
     Dates: start: 20210310, end: 20210714
  10. ONPATTRO [Suspect]
     Active Substance: PATISIRAN SODIUM
     Dosage: 12.3 MILLIGRAM
     Route: 041
     Dates: start: 20210804, end: 20211006
  11. ONPATTRO [Suspect]
     Active Substance: PATISIRAN SODIUM
     Dosage: 12.6 MILLIGRAM
     Route: 041
     Dates: start: 20211027, end: 20211027
  12. ONPATTRO [Suspect]
     Active Substance: PATISIRAN SODIUM
     Dosage: 12.3 MILLIGRAM
     Route: 041
     Dates: start: 20211117, end: 20211117
  13. ONPATTRO [Suspect]
     Active Substance: PATISIRAN SODIUM
     Dosage: 12.0 MILLIGRAM
     Route: 041
     Dates: start: 20211208, end: 20211208
  14. ONPATTRO [Suspect]
     Active Substance: PATISIRAN SODIUM
     Dosage: 12.3 MILLIGRAM
     Route: 041
     Dates: start: 20211228, end: 20211228
  15. ONPATTRO [Suspect]
     Active Substance: PATISIRAN SODIUM
     Dosage: 11.7 MILLIGRAM
     Route: 041
     Dates: start: 20220119, end: 20220830
  16. GASTER [Concomitant]
     Active Substance: FAMOTIDINE
     Indication: Prophylaxis
     Dosage: 20 MILLIGRAM, SINGLE
     Route: 042
     Dates: start: 20191106, end: 20200129
  17. POLARAMINE [Concomitant]
     Active Substance: DEXCHLORPHENIRAMINE MALEATE
     Indication: Prophylaxis
     Dosage: 5 MILLIGRAM, SINGLE
     Route: 042
     Dates: start: 20191106, end: 20220830
  18. DEXAMETHASONE SODIUM PHOSPHATE [Concomitant]
     Active Substance: DEXAMETHASONE PHOSPHATE\DEXAMETHASONE SODIUM PHOSPHATE
     Indication: Prophylaxis
     Dosage: 10 MILLIGRAM, SINGLE
     Route: 042
     Dates: start: 20191106, end: 20220830
  19. CALONAL [Concomitant]
     Active Substance: ACETAMINOPHEN
     Indication: Prophylaxis
     Dosage: 100 MILLIGRAM, SINGLE
     Route: 048
     Dates: start: 20191106, end: 20191127
  20. CALONAL [Concomitant]
     Active Substance: ACETAMINOPHEN
     Indication: Prophylaxis
     Dosage: 400 MILLIGRAM, SINGLE
     Route: 048
     Dates: start: 20191106, end: 20191127
  21. CALONAL [Concomitant]
     Active Substance: ACETAMINOPHEN
     Dosage: 500 MILLIGRAM, SINGLE
     Route: 048
     Dates: start: 20191218, end: 20220830
  22. FAMOTIDINE [Concomitant]
     Active Substance: FAMOTIDINE
     Indication: Prophylaxis
     Dosage: 20 MILLIGRAM, SINGLE
     Route: 042
     Dates: start: 20200219, end: 20220830
  23. VITAMINS [Concomitant]
     Active Substance: VITAMINS
     Indication: Vitamin supplementation
     Dosage: 1 GRAM, QD
     Route: 048
     Dates: start: 20191106
  24. VITAMINS [Concomitant]
     Active Substance: VITAMINS
     Indication: Prophylaxis
  25. PENTAZOCINE [Concomitant]
     Active Substance: PENTAZOCINE
     Indication: Cardiac pacemaker replacement
     Dosage: 15 MILLIGRAM
     Route: 065
     Dates: start: 20200407, end: 20200407
  26. IOMERON [Concomitant]
     Active Substance: IOMEPROL
     Indication: Cardiac pacemaker replacement
     Dosage: UNK
     Route: 065
     Dates: start: 20200407, end: 20200407
  27. XYLOCAINE [Concomitant]
     Active Substance: LIDOCAINE HYDROCHLORIDE
     Indication: Cardiac pacemaker replacement
     Dosage: UNK
     Route: 065
     Dates: start: 20200407, end: 20200407
  28. CEFAZOLIN SODIUM [Concomitant]
     Active Substance: CEFAZOLIN SODIUM
     Indication: Cardiac pacemaker replacement
     Dosage: 2 GRAM
     Route: 065
     Dates: start: 20200407, end: 20200407
  29. HEPARININ [Concomitant]
     Indication: Cardiac pacemaker replacement
     Dosage: 10 KUNITS
     Route: 065
     Dates: start: 20200407, end: 20200407
  30. CALCIUM CHLORIDE\POTASSIUM CHLORIDE\SODIUM ACETATE\SODIUM CHLORIDE [Concomitant]
     Active Substance: CALCIUM CHLORIDE\POTASSIUM CHLORIDE\SODIUM ACETATE\SODIUM CHLORIDE
     Indication: Cardiac pacemaker replacement
     Dosage: UNK
     Route: 065
     Dates: start: 20200407, end: 20200407
  31. RAMOSETRON HYDROCHLORIDE [Concomitant]
     Active Substance: RAMOSETRON HYDROCHLORIDE
     Indication: Constipation
     Dosage: 5 MICROGRAM, BID
     Route: 048
     Dates: end: 20200228
  32. RAMOSETRON HYDROCHLORIDE [Concomitant]
     Active Substance: RAMOSETRON HYDROCHLORIDE
     Indication: Diarrhoea
  33. FEXOFENADINE HYDROCHLORIDE [Concomitant]
     Active Substance: FEXOFENADINE HYDROCHLORIDE
     Indication: Rhinitis allergic
     Dosage: 60 MILLIGRAM, QD
     Route: 048
  34. LYRICA [Concomitant]
     Active Substance: PREGABALIN
     Indication: Neuropathy peripheral
     Dosage: 300 MILLIGRAM
     Route: 048
  35. LYRICA [Concomitant]
     Active Substance: PREGABALIN
     Dosage: 75 MILLIGRAM, BID
     Route: 048
     Dates: end: 20220630
  36. SHAKUYAKUKANZOTO [Concomitant]
     Active Substance: HERBALS
     Indication: Muscle spasms
     Dosage: 2.5 GRAM, QD
     Route: 048
  37. LOPERAMIDE [Concomitant]
     Active Substance: LOPERAMIDE
     Indication: Diarrhoea
     Dosage: 1 MILLIGRAM, BID
     Route: 048
     Dates: start: 20200513
  38. MIDODRINE HYDROCHLORIDE [Concomitant]
     Active Substance: MIDODRINE HYDROCHLORIDE
     Indication: Hypotension
     Dosage: 2 MILLIGRAM, BID
     Route: 065
  39. FURSULTIAMINE [Concomitant]
     Active Substance: FURSULTIAMINE
     Indication: Vitamin B1 deficiency
     Dosage: 50 MILLIGRAM, BID
     Route: 065
     Dates: start: 20200213
  40. FURSULTIAMINE [Concomitant]
     Active Substance: FURSULTIAMINE
     Indication: Vitamin B1 deficiency
     Dosage: 25 MILLIGRAM, BID
     Route: 048
     Dates: start: 20191112
  41. LAC-B GRANULAR POWDER N [Concomitant]
     Indication: Enterocolitis
     Dosage: 4 MILLIGRAM
     Route: 048
  42. LAC-B GRANULAR POWDER N [Concomitant]
     Indication: Diarrhoea
     Dosage: 1 GRAM, BID
     Route: 048
     Dates: end: 20191202
  43. LAC-B GRANULAR POWDER N [Concomitant]
     Dosage: 1 GRAM, BID
     Route: 048
     Dates: start: 20210127, end: 20210216
  44. AMEZINIUM METILSULFATE [Concomitant]
     Active Substance: AMEZINIUM METILSULFATE
     Indication: Hypotension
     Dosage: 20 MILLIGRAM
     Route: 048
     Dates: end: 20200406
  45. AMEZINIUM METILSULFATE [Concomitant]
     Active Substance: AMEZINIUM METILSULFATE
     Indication: Hypotension
     Dosage: 10 MILLIGRAM, BID
     Route: 048
     Dates: start: 20200407
  46. POTASSIUM ASPARTATE [Concomitant]
     Active Substance: POTASSIUM ASPARTATE
     Indication: Hypokalaemia
     Dosage: 300 MILLIGRAM, TID
     Route: 048
     Dates: start: 20200324, end: 20200428
  47. POTASSIUM ASPARTATE [Concomitant]
     Active Substance: POTASSIUM ASPARTATE
     Dosage: 300 MILLIGRAM, QD
     Route: 048
     Dates: start: 20200429, end: 20201126
  48. POTASSIUM ASPARTATE [Concomitant]
     Active Substance: POTASSIUM ASPARTATE
     Dosage: 300 MILLIGRAM, BID
     Route: 048
     Dates: start: 20210127, end: 20210602
  49. POTASSIUM ASPARTATE [Concomitant]
     Active Substance: POTASSIUM ASPARTATE
     Dosage: 300 MILLIGRAM, QD
     Route: 048
     Dates: start: 20210602
  50. MIYA-BM [Concomitant]
     Active Substance: CLOSTRIDIUM BUTYRICUM SPORES STRAIN M-55
     Indication: Dysbiosis
     Dosage: 1 DOSAGE FORM, TID
     Route: 048
     Dates: start: 20201028, end: 20210216
  51. MIYA-BM [Concomitant]
     Active Substance: CLOSTRIDIUM BUTYRICUM SPORES STRAIN M-55
     Dosage: 1 DOSAGE FORM, TID
     Route: 048
     Dates: start: 20210421, end: 20210512
  52. AMOXICILLIN [Concomitant]
     Active Substance: AMOXICILLIN
     Indication: Tooth extraction
     Dosage: 250 MILLIGRAM, TID
     Route: 048
     Dates: start: 20200713, end: 20200714
  53. CALONAL [Concomitant]
     Active Substance: ACETAMINOPHEN
     Indication: Neuropathy peripheral
     Dosage: 500 MILLIGRAM, PRN
     Route: 048
     Dates: start: 20200916
  54. CALONAL [Concomitant]
     Active Substance: ACETAMINOPHEN
     Dosage: 500 MILLIGRAM, SINGLE
     Route: 048
  55. FELBINAC [Concomitant]
     Active Substance: FELBINAC
     Indication: Neuropathy peripheral
     Dosage: APPROPRIATE AMOUNT, 2-3 TIMES/DAY
     Dates: start: 20200916, end: 20201118
  56. HERBAL NOS [Concomitant]
     Active Substance: HERBALS
     Indication: Cardiac ablation
     Dosage: 7.5 GRAM, TID
     Route: 065
     Dates: start: 20201001, end: 20201005
  57. HERBAL NOS [Concomitant]
     Active Substance: HERBALS
     Indication: Atrial fibrillation
  58. AMBROXOL HYDROCHLORIDE [Concomitant]
     Active Substance: AMBROXOL HYDROCHLORIDE
     Indication: Cardiac ablation
     Dosage: 45 MILLIGRAM, QD
     Route: 048
     Dates: start: 20201001, end: 20201004
  59. BISOPROLOL FUMARATE [Concomitant]
     Active Substance: BISOPROLOL FUMARATE
     Indication: Cardiac failure
     Dosage: 0.625 MILLIGRAM, QD
     Route: 048
     Dates: start: 20201023, end: 20201126
  60. BISOPROLOL FUMARATE [Concomitant]
     Active Substance: BISOPROLOL FUMARATE
     Dosage: 1.25 MILLIGRAM, QD
     Route: 048
     Dates: start: 20201127
  61. AZOSEMIDE [Concomitant]
     Active Substance: AZOSEMIDE
     Indication: Cardiac failure
     Dosage: 15 MILLIGRAM, QD
     Route: 048
     Dates: start: 20191116, end: 20201217
  62. AZOSEMIDE [Concomitant]
     Active Substance: AZOSEMIDE
     Dosage: 30 MILLIGRAM, PRN
     Route: 048
     Dates: start: 20200219, end: 20200713
  63. AZOSEMIDE [Concomitant]
     Active Substance: AZOSEMIDE
     Dosage: 30 MILLIGRAM, QD
     Route: 048
     Dates: start: 20200714
  64. EDOXABAN TOSYLATE [Concomitant]
     Active Substance: EDOXABAN TOSYLATE
     Indication: Prophylaxis
     Dosage: 30 MILLIGRAM, QD
     Route: 048
     Dates: start: 20200120, end: 20220630
  65. HEPARIN [Concomitant]
     Active Substance: HEPARIN SODIUM
     Indication: Thrombosis prophylaxis
     Dosage: 15000 UNIT
     Route: 065
     Dates: start: 20220622, end: 20220911
  66. AMPICILLIN [Concomitant]
     Active Substance: AMPICILLIN
     Indication: Vitamin supplementation
     Dosage: 1 GRAM, QID
     Route: 065
     Dates: start: 20220701, end: 20220814
  67. MIDAZOLAM [Concomitant]
     Active Substance: MIDAZOLAM
     Indication: Sedation
     Dosage: 10 MILLIGRAM, QD
     Route: 065
     Dates: start: 20220909, end: 20220911

REACTIONS (13)
  - Infectious pleural effusion [Fatal]
  - Seizure [Recovered/Resolved]
  - Cardiac failure [Recovered/Resolved]
  - Ventricular arrhythmia [Recovered/Resolved]
  - Muscular weakness [Recovered/Resolved]
  - Oedema peripheral [Recovered/Resolved]
  - Pleural effusion [Recovered/Resolved]
  - Atrial fibrillation [Recovered/Resolved]
  - Blood pressure decreased [Recovered/Resolved]
  - Neurogenic bladder [Recovered/Resolved]
  - Hypokalaemia [Recovered/Resolved]
  - Gastrooesophageal reflux disease [Unknown]
  - Constipation [Recovered/Resolved]

NARRATIVE: CASE EVENT DATE: 20191111
